FAERS Safety Report 5671113-1 (Version None)
Quarter: 2008Q1

REPORT INFORMATION
  Report Type: 
  Country: None (occurrence: None)
  Receive Date: 20080318
  Receipt Date: 20080313
  Transmission Date: 20080703
  Serious: Yes (Death, Hospitalization, Other)
  Sender: FDA-Public Use
  Company Number: NL-SANOFI-SYNTHELABO-A01200802992

PATIENT
  Sex: Male

DRUGS (3)
  1. AVASTIN [Suspect]
     Dosage: UNK
     Route: 065
  2. OXALIPLATIN [Suspect]
     Indication: COLON CANCER
     Dosage: UNK
     Route: 042
  3. XELODA [Suspect]
     Dosage: UNK
     Route: 065

REACTIONS (3)
  - DEATH [None]
  - EMBOLISM [None]
  - LEG AMPUTATION [None]
